FAERS Safety Report 6330337-0 (Version None)
Quarter: 2009Q3

REPORT INFORMATION
  Report Type: 
  Country: None (occurrence: None)
  Receive Date: 20090826
  Receipt Date: 20090826
  Transmission Date: 20100115
  Serious: Yes (Hospitalization)
  Sender: FDA-Public Use
  Company Number: None

PATIENT
  Age: 61 Year
  Sex: Female
  Weight: 43.0917 kg

DRUGS (14)
  1. FLUOXETINE [Suspect]
     Indication: DEPRESSION
     Dosage: 40MG DAILY PO
     Route: 048
     Dates: start: 20080201, end: 20080823
  2. MAGNESIUM OXIDE [Concomitant]
  3. POTASSIUM CHLORIDE [Concomitant]
  4. SPIRONOLACTONE [Concomitant]
  5. LACTULOSE [Concomitant]
  6. DILTIAZEM [Concomitant]
  7. SYNTHROID [Concomitant]
  8. ALLOPURINOL [Concomitant]
  9. MULTIVITAMIN DAILY [Concomitant]
  10. AMITRIPTYLINE HCL [Concomitant]
  11. FUROSEMIDE [Concomitant]
  12. LOVASTATIN [Concomitant]
  13. REQUIP [Concomitant]
  14. INSULIN [Concomitant]

REACTIONS (13)
  - ASCITES [None]
  - ATAXIA [None]
  - CHRONIC HEPATITIS [None]
  - CONFUSIONAL STATE [None]
  - DIPLOPIA [None]
  - FALL [None]
  - HEPATIC CIRRHOSIS [None]
  - HEPATIC ENCEPHALOPATHY [None]
  - PERITONITIS BACTERIAL [None]
  - SOMNOLENCE [None]
  - TREATMENT NONCOMPLIANCE [None]
  - VITAMIN B12 INCREASED [None]
  - VITAMIN D DEFICIENCY [None]
